FAERS Safety Report 10414129 (Version 2)
Quarter: 2014Q3

REPORT INFORMATION
  Report Type: Spontaneous
  Country: US (occurrence: US)
  Receive Date: 20140827
  Receipt Date: 20140827
  Transmission Date: 20150326
  Serious: No
  Sender: FDA-Public Use
  Company Number: US-ASTRAZENECA-2013SE77498

PATIENT
  Age: 70 Year
  Sex: Male
  Weight: 81.6 kg

DRUGS (2)
  1. O2 [Concomitant]
  2. SYMBICORT [Suspect]
     Active Substance: BUDESONIDE\FORMOTEROL FUMARATE DIHYDRATE
     Indication: EMPHYSEMA
     Dosage: 160/4.5, 2 PUFFS  BID
     Route: 055
     Dates: start: 2008

REACTIONS (4)
  - Malaise [Unknown]
  - Circumstance or information capable of leading to medication error [Unknown]
  - Respiratory tract congestion [Unknown]
  - Fatigue [Unknown]
